FAERS Safety Report 20669110 (Version 1)
Quarter: 2022Q2

REPORT INFORMATION
  Report Type: Spontaneous
  Country: NL (occurrence: NL)
  Receive Date: 20220404
  Receipt Date: 20220404
  Transmission Date: 20220721
  Serious: Yes (Other)
  Sender: FDA-Public Use
  Company Number: None

PATIENT
  Sex: Female
  Weight: 58 kg

DRUGS (3)
  1. DESLORATADINE [Suspect]
     Active Substance: DESLORATADINE
     Indication: Hypersensitivity
     Dosage: 5 MG, QD (1 X PER DAG 1 STUK)
     Route: 065
     Dates: start: 202106, end: 20210731
  2. DESLORATADINE [Suspect]
     Active Substance: DESLORATADINE
     Indication: Seasonal allergy
  3. FLUTICASONE [Concomitant]
     Active Substance: FLUTICASONE
     Indication: Product used for unknown indication
     Dosage: AEROSOL, 50 ?G/DOSE (MICROGRAMS PER DOSE)
     Route: 065

REACTIONS (2)
  - Suicidal ideation [Recovered/Resolved]
  - Depressed mood [Recovered/Resolved]
